FAERS Safety Report 8071964-2 (Version None)
Quarter: 2012Q1

REPORT INFORMATION
  Report Type: 
  Country: None (occurrence: None)
  Receive Date: 20120119
  Receipt Date: 20120106
  Transmission Date: 20120608
  Serious: Yes (Death, Other)
  Sender: FDA-Public Use
  Company Number: AXC-2012-000005

PATIENT
  Age: 25 Year
  Sex: Male

DRUGS (2)
  1. PREDNISOLONE [Suspect]
     Indication: COLITIS ULCERATIVE
     Dosage: 5 MG QD
  2. URSODIOL [Suspect]
     Indication: CHOLANGITIS
     Dosage: 600 MG, QD

REACTIONS (11)
  - METASTASES TO LYMPH NODES [None]
  - METASTASES TO LUNG [None]
  - CONDITION AGGRAVATED [None]
  - BILE DUCT STENOSIS [None]
  - DILATATION INTRAHEPATIC DUCT ACQUIRED [None]
  - BILE DUCT CANCER [None]
  - CHOLANGITIS SCLEROSING [None]
  - HEPATIC FIBROSIS [None]
  - METASTASES TO LIVER [None]
  - CHOLECYSTITIS [None]
  - COLITIS ULCERATIVE [None]
